FAERS Safety Report 12745146 (Version 1)
Quarter: 2016Q3

REPORT INFORMATION
  Report Type: Report from Study
  Country: US (occurrence: US)
  Receive Date: 20160915
  Receipt Date: 20160915
  Transmission Date: 20161109
  Serious: Yes (Death, Life-Threatening, Hospitalization, Other)
  Sender: FDA-Public Use
  Company Number: US-ROCHE-1285338

PATIENT
  Age: 76 Year
  Sex: Female
  Weight: 61.4 kg

DRUGS (5)
  1. BEVACIZUMAB [Suspect]
     Active Substance: BEVACIZUMAB
     Indication: OVARIAN EPITHELIAL CANCER
     Dosage: LAST DOSE ON 06/SEP/2013 WAS 609 MG
     Route: 065
     Dates: start: 20130823
  2. VELIPARIB [Suspect]
     Active Substance: VELIPARIB
     Indication: OVARIAN EPITHELIAL CANCER
     Dosage: ON DAYS 1-28, LAST DOSE ON 06/SEP/2013 WAS 1520 MG
     Route: 048
     Dates: start: 20130823
  3. CARBOPLATIN. [Suspect]
     Active Substance: CARBOPLATIN
     Indication: OVARIAN EPITHELIAL CANCER
     Dosage: AUC5, OVER 30 MINUTES ON DAY 1, LAST DOSE ON 23/AUG/2013 WAS 289 MG
     Route: 042
     Dates: start: 20130823
  4. WARFARIN [Concomitant]
     Active Substance: WARFARIN
  5. LIPOSOMAL DOXORUBICIN [Suspect]
     Active Substance: DOXORUBICIN HYDROCHLORIDE
     Indication: OVARIAN EPITHELIAL CANCER
     Dosage: OVER 1 HOUR ON DAY 1, LAST DOSE ON 23/AUG/2013 WAS 49 MG
     Route: 042
     Dates: start: 20130823

REACTIONS (13)
  - White blood cell count decreased [Unknown]
  - Aspiration [Unknown]
  - Hypertension [Unknown]
  - Dyspnoea [Unknown]
  - Acidosis [Unknown]
  - Neutrophil count decreased [Unknown]
  - Ascites [Unknown]
  - Platelet count decreased [Unknown]
  - International normalised ratio increased [Unknown]
  - Sepsis [Fatal]
  - Hypoalbuminaemia [Unknown]
  - Small intestinal obstruction [Unknown]
  - Dysphagia [Unknown]

NARRATIVE: CASE EVENT DATE: 20130904
